FAERS Safety Report 8017322-8 (Version None)
Quarter: 2012Q1

REPORT INFORMATION
  Report Type: 
  Country: None (occurrence: None)
  Receive Date: 20120102
  Receipt Date: 20111230
  Transmission Date: 20120608
  Serious: Yes (Hospitalization, Other)
  Sender: FDA-Public Use
  Company Number: DE-ROCHE-1022627

PATIENT
  Age: 20 Year
  Sex: Female
  Weight: 55 kg

DRUGS (1)
  1. LARIAM [Suspect]
     Indication: MALARIA PROPHYLAXIS
     Route: 048
     Dates: start: 20110901

REACTIONS (7)
  - DIZZINESS [None]
  - LOSS OF CONSCIOUSNESS [None]
  - WHITE BLOOD CELL COUNT INCREASED [None]
  - NAUSEA [None]
  - SOMNOLENCE [None]
  - HEADACHE [None]
  - PYREXIA [None]
